FAERS Safety Report 4624121-3 (Version None)
Quarter: 2005Q1

REPORT INFORMATION
  Report Type: 
  Country: None (occurrence: None)
  Receive Date: 20050324
  Receipt Date: 20050324
  Transmission Date: 20050727
  Serious: Yes (Death)
  Sender: FDA-Public Use
  Company Number: None

PATIENT
  Age: 56 Year
  Sex: Male

DRUGS (5)
  1. NEURONTIN [Suspect]
     Indication: DIABETIC NEUROPATHY
     Dosage: 3000MG DAILY, ORAL
     Route: 048
     Dates: start: 20000401, end: 20030901
  2. CELEBREX [Concomitant]
  3. NOVOLIN [Concomitant]
  4. PAXIL [Concomitant]
  5. NEXIUM [Concomitant]

REACTIONS (2)
  - COMPLETED SUICIDE [None]
  - OVERDOSE [None]
